FAERS Safety Report 5300466-9 (Version None)
Quarter: 2007Q2

REPORT INFORMATION
  Report Type: 
  Country: None (occurrence: None)
  Receive Date: 20070411
  Receipt Date: 20070402
  Transmission Date: 20071010
  Serious: Yes (Death)
  Sender: FDA-Public Use
  Company Number: JPI-P-000993

PATIENT
  Age: 61 Year
  Sex: Female

DRUGS (8)
  1. XYREM [Suspect]
     Indication: DRUG USE FOR UNKNOWN INDICATION
     Dosage: ORAL
     Route: 048
  2. ZOCOR [Concomitant]
  3. NORVASC [Concomitant]
  4. PREVACID [Concomitant]
  5. CLONAZEPAM [Concomitant]
  6. ALBUTEROL [Concomitant]
  7. ADVAIR (SERETIDE) [Concomitant]
  8. SPIRIVA [Concomitant]

REACTIONS (3)
  - CARDIAC ARREST [None]
  - CHRONIC OBSTRUCTIVE PULMONARY DISEASE [None]
  - CONDITION AGGRAVATED [None]
